FAERS Safety Report 7968528-5 (Version None)
Quarter: 2011Q4

REPORT INFORMATION
  Report Type: 
  Country: None (occurrence: None)
  Receive Date: 20111209
  Receipt Date: 20111201
  Transmission Date: 20120403
  Serious: Yes (Other)
  Sender: FDA-Public Use
  Company Number: US-BAYER-2011-115495

PATIENT
  Sex: Female

DRUGS (4)
  1. MIRENA [Suspect]
     Dosage: 20 MCG/24HR, CONT
     Route: 015
     Dates: start: 20090101
  2. ANTIBIOTICS [Interacting]
     Indication: EAR INFECTION
  3. ANTIBIOTICS [Interacting]
     Indication: PHARYNGITIS
  4. ANTIBIOTICS [Interacting]
     Indication: SINUSITIS
     Dosage: UNK
     Dates: start: 20111101

REACTIONS (2)
  - VAGINAL HAEMORRHAGE [None]
  - MENSTRUATION IRREGULAR [None]
